FAERS Safety Report 14468486 (Version 5)
Quarter: 2018Q2

REPORT INFORMATION
  Report Type: Spontaneous
  Country: RU (occurrence: RU)
  Receive Date: 20180131
  Receipt Date: 20180622
  Transmission Date: 20180711
  Serious: Yes (Other)
  Sender: FDA-Public Use
  Company Number: RU-ASTRAZENECA-2018SE11529

PATIENT
  Age: 80 Year
  Sex: Female
  Weight: 60 kg

DRUGS (9)
  1. PHOSPHALUGEL [Concomitant]
     Active Substance: ALUMINUM PHOSPHATE
  2. RAMIPRIL. [Concomitant]
     Active Substance: RAMIPRIL
  3. BISOPROLOL [Concomitant]
     Active Substance: BISOPROLOL
  4. TRIMEBUTINE [Concomitant]
     Active Substance: TRIMEBUTINE
  5. BRILINTA [Suspect]
     Active Substance: TICAGRELOR
     Indication: MYOCARDIAL INFARCTION
     Route: 048
     Dates: start: 20170623
  6. NOLIPREL [Concomitant]
  7. ACETYLSALICYLIC ACID [Concomitant]
     Active Substance: ASPIRIN
     Dates: end: 201708
  8. AMLODIPINE [Concomitant]
     Active Substance: AMLODIPINE BESYLATE
  9. ATORVASTATIN [Concomitant]
     Active Substance: ATORVASTATIN

REACTIONS (11)
  - Weight decreased [Not Recovered/Not Resolved]
  - Decreased appetite [Recovered/Resolved]
  - Off label use [Unknown]
  - Heart rate decreased [Not Recovered/Not Resolved]
  - Constipation [Not Recovered/Not Resolved]
  - Contusion [Recovered/Resolved]
  - Gastric ulcer [Not Recovered/Not Resolved]
  - Haemoglobin decreased [Unknown]
  - Dyspnoea [Not Recovered/Not Resolved]
  - Product use issue [Unknown]
  - Cholelithiasis [Unknown]

NARRATIVE: CASE EVENT DATE: 201708
